FAERS Safety Report 25238147 (Version 1)
Quarter: 2025Q2

REPORT INFORMATION
  Report Type: Spontaneous
  Country: US (occurrence: US)
  Receive Date: 20250425
  Receipt Date: 20250425
  Transmission Date: 20250716
  Serious: Yes (Other)
  Sender: CHEPLAPHARM
  Company Number: US-ROCHE-3514088

PATIENT
  Sex: Female
  Weight: 70.3 kg

DRUGS (40)
  1. CLONAZEPAM [Suspect]
     Active Substance: CLONAZEPAM
     Indication: Anxiety
     Route: 048
  2. CLONAZEPAM [Suspect]
     Active Substance: CLONAZEPAM
     Indication: Anxiety
     Route: 048
  3. CELLCEPT [Suspect]
     Active Substance: MYCOPHENOLATE MOFETIL
     Indication: Polymyositis
     Route: 048
     Dates: start: 20240219
  4. CELLCEPT [Suspect]
     Active Substance: MYCOPHENOLATE MOFETIL
     Indication: Myopathy
     Route: 048
     Dates: start: 20240219
  5. CELLCEPT [Suspect]
     Active Substance: MYCOPHENOLATE MOFETIL
     Indication: Myositis
     Route: 048
     Dates: start: 20240219
  6. CELLCEPT [Suspect]
     Active Substance: MYCOPHENOLATE MOFETIL
     Indication: Muscle necrosis
     Route: 048
     Dates: start: 20240219
  7. CELLCEPT [Suspect]
     Active Substance: MYCOPHENOLATE MOFETIL
     Indication: Polymyositis
     Route: 048
     Dates: start: 20240528
  8. CELLCEPT [Suspect]
     Active Substance: MYCOPHENOLATE MOFETIL
     Indication: Myopathy
     Route: 048
     Dates: start: 20240528
  9. CELLCEPT [Suspect]
     Active Substance: MYCOPHENOLATE MOFETIL
     Indication: Myositis
     Route: 048
     Dates: start: 20240528
  10. CELLCEPT [Suspect]
     Active Substance: MYCOPHENOLATE MOFETIL
     Indication: Muscle necrosis
     Route: 048
     Dates: start: 20240528
  11. ACETAMINOPHEN [Concomitant]
     Active Substance: ACETAMINOPHEN
     Dosage: DAILY DOSE: 1300 MILLIGRAM
     Route: 048
  12. ALBUTEROL [Concomitant]
     Active Substance: ALBUTEROL
     Indication: Dyspnoea
  13. ALBUTEROL [Concomitant]
     Active Substance: ALBUTEROL
     Indication: Wheezing
  14. AMMONIUM LACTATE [Concomitant]
     Active Substance: AMMONIUM LACTATE
     Indication: Dry skin
     Route: 061
  15. APPLE CIDER VINEGAR [Concomitant]
     Active Substance: APPLE CIDER VINEGAR
     Dosage: AT BEDTIME?DAILY DOSE: 1 DOSAGE FORM
     Route: 048
  16. ASPIRIN [Concomitant]
     Active Substance: ASPIRIN
     Dosage: AT BEDTIME?DAILY DOSE: 1 DOSAGE FORM
     Route: 048
  17. CHOLECALCIFEROL [Concomitant]
     Active Substance: CHOLECALCIFEROL
     Route: 048
  18. CINNAMON [Concomitant]
     Active Substance: CINNAMON
     Dosage: EVERY MORNING
     Route: 048
  19. COENZYME Q10 [Concomitant]
     Active Substance: DIETARY SUPPLEMENT\UBIDECARENONE
     Route: 048
  20. DICLOFENAC [Concomitant]
     Active Substance: DICLOFENAC
     Route: 061
  21. DOCUSATE SODIUM [Concomitant]
     Active Substance: DOCUSATE SODIUM
     Route: 048
  22. FLUTICASONE [Concomitant]
     Active Substance: FLUTICASONE
     Dosage: 2 SPRAY NASALLY
     Route: 045
  23. FOLIC ACID [Concomitant]
     Active Substance: FOLIC ACID
     Route: 048
  24. GABAPENTIN [Concomitant]
     Active Substance: GABAPENTIN
     Route: 048
  25. GLIPIZIDE [Concomitant]
     Active Substance: GLIPIZIDE
     Route: 048
  26. HYDROXYZINE [Concomitant]
     Active Substance: HYDROXYZINE HYDROCHLORIDE
     Route: 048
  27. LIDOCAINE [Concomitant]
     Active Substance: LIDOCAINE
  28. MELATONIN [Concomitant]
     Active Substance: MELATONIN
     Dosage: AT BEDTIME?DAILY DOSE: 10 MILLIGRAM
     Route: 048
  29. METFORMIN [Concomitant]
     Active Substance: METFORMIN HYDROCHLORIDE
     Route: 048
  30. METOPROLOL SUCCINATE [Concomitant]
     Active Substance: METOPROLOL SUCCINATE
     Route: 048
  31. OFLOXACIN [Concomitant]
     Active Substance: OFLOXACIN
     Dosage: 5 DROP IN LEFT EAR?DAILY DOSE: 5 DROP
  32. OMEGA-3 FATTY ACIDS [Concomitant]
     Active Substance: OMEGA-3 FATTY ACIDS
     Route: 048
  33. OMEPRAZOLE [Concomitant]
     Active Substance: OMEPRAZOLE
     Route: 048
  34. POLYETHYLENE GLYCOL [Concomitant]
     Active Substance: POLYETHYLENE GLYCOL
     Dosage: DAILY DOSE: 17 GRAM
     Route: 048
  35. PILOCARPINE [Concomitant]
     Active Substance: PILOCARPINE
     Dosage: DAILY DOSE: 1 DOSAGE FORM
  36. TOLTERODINE [Concomitant]
     Active Substance: TOLTERODINE
     Route: 048
  37. TRIAMCINOLONE [Concomitant]
     Active Substance: TRIAMCINOLONE
     Route: 061
  38. TRIAMCINOLONE [Concomitant]
     Active Substance: TRIAMCINOLONE
  39. HYDROCODONE BITARTRATE AND ACETAMINOPHEN [Concomitant]
     Active Substance: ACETAMINOPHEN\HYDROCODONE BITARTRATE
  40. VITAMIN E [Concomitant]
     Active Substance: .ALPHA.-TOCOPHEROL

REACTIONS (16)
  - Cardiomyopathy [Unknown]
  - Cardiac failure congestive [Unknown]
  - Systemic lupus erythematosus [Unknown]
  - Angina pectoris [Unknown]
  - Thrombocytopenia [Unknown]
  - Type 2 diabetes mellitus [Unknown]
  - Sarcoidosis [Unknown]
  - Hypertension [Unknown]
  - Hyperlipidaemia [Unknown]
  - Obesity [Unknown]
  - Weight decreased [Unknown]
  - Anxiety [Unknown]
  - Diabetic retinopathy [Unknown]
  - Hypertonic bladder [Unknown]
  - Anaemia [Unknown]
  - Troponin increased [Unknown]
